FAERS Safety Report 25312400 (Version 1)
Quarter: 2025Q2

REPORT INFORMATION
  Report Type: Report from Study
  Country: US (occurrence: US)
  Receive Date: 20250514
  Receipt Date: 20250514
  Transmission Date: 20250717
  Serious: Yes (Other)
  Sender: AMGEN
  Company Number: US-AMGEN-USASL2025062176

PATIENT
  Age: 76 Year
  Sex: Female

DRUGS (24)
  1. OTEZLA [Suspect]
     Active Substance: APREMILAST
     Indication: Psoriasis
     Dosage: 30 MILLIGRAM, BID
     Route: 048
     Dates: start: 20200114
  2. ACYCLOVIR [Concomitant]
     Active Substance: ACYCLOVIR
     Dosage: 400 MILLIGRAM, BID
     Route: 048
  3. ALEVE [Concomitant]
     Active Substance: NAPROXEN SODIUM
     Route: 048
  4. AMLODIPINE [Concomitant]
     Active Substance: AMLODIPINE BESYLATE
     Route: 048
  5. BRIMONIDINE [Concomitant]
     Active Substance: BRIMONIDINE TARTRATE
  6. CYCLOBENZAPRINE [Concomitant]
     Active Substance: CYCLOBENZAPRINE
     Route: 048
  7. DORZOLAMIDE [Concomitant]
     Active Substance: DORZOLAMIDE
  8. TIMOLOL [Concomitant]
     Active Substance: TIMOLOL
  9. FOLIC ACID [Concomitant]
     Active Substance: FOLIC ACID
     Route: 048
  10. LATANOPROST [Concomitant]
     Active Substance: LATANOPROST
  11. MAGNESIUM [Concomitant]
     Active Substance: MAGNESIUM
     Route: 048
  12. METHYLPHENIDATE [Concomitant]
     Active Substance: METHYLPHENIDATE
     Route: 048
  13. METRONIDAZOLE [Concomitant]
     Active Substance: METRONIDAZOLE
  14. NIACINAMIDE [Concomitant]
     Active Substance: NIACINAMIDE
     Dosage: 500 MILLIGRAM, QD
     Route: 048
  15. PAROXETINE [Concomitant]
     Active Substance: PAROXETINE
     Dosage: 40 MILLIGRAM, QD
     Route: 048
  16. POTASSIUM CHLORIDE [Concomitant]
     Active Substance: POTASSIUM CHLORIDE
     Route: 048
  17. Omega [Concomitant]
  18. ROSUVASTATIN [Concomitant]
     Active Substance: ROSUVASTATIN
     Route: 048
  19. MODERNA COVID-19 VACCINE [Concomitant]
     Active Substance: ELASOMERAN
     Route: 030
     Dates: start: 20210428
  20. TETANUS TOXOID, REDUCED DIPHTHERIA TOXOID AND ACELLULAR PERTUSSIS VACC [Concomitant]
     Active Substance: TETANUS TOXOID, REDUCED DIPHTHERIA TOXOID AND ACELLULAR PERTUSSIS VACCINE ADSORBED, TDAP
     Route: 030
     Dates: start: 20151026
  21. INFLUENZA VIRUS VACCINE [Concomitant]
     Active Substance: INFLUENZA VIRUS VACCINE
     Route: 030
     Dates: start: 20171026
  22. PNEUMOCOCCAL VACCINE POLYVALENT NOS [Concomitant]
     Active Substance: PNEUMOCOCCAL VACCINE, POLYVALENT
     Route: 030
     Dates: start: 20170119
  23. UNSPECIFIED INGREDIENT [Concomitant]
     Active Substance: UNSPECIFIED INGREDIENT
     Route: 030
     Dates: start: 20231023
  24. Zoster [Concomitant]
     Route: 030
     Dates: start: 20180924

REACTIONS (41)
  - Arthritis reactive [Unknown]
  - Psoriatic arthropathy [Unknown]
  - Basal cell carcinoma [Unknown]
  - Hypothyroidism [Unknown]
  - Hypokalaemia [Unknown]
  - Hypogammaglobulinaemia [Unknown]
  - Narcolepsy [Unknown]
  - Cardiac aneurysm [Unknown]
  - Aortic valve incompetence [Unknown]
  - Diverticulitis [Unknown]
  - Chronic kidney disease [Unknown]
  - Squamous cell carcinoma [Unknown]
  - Herpes simplex [Unknown]
  - Neoplasm skin [Unknown]
  - Hyperlipidaemia [Unknown]
  - Hypercalcaemia [Unknown]
  - Pernicious anaemia [Unknown]
  - Depression [Unknown]
  - Raynaud^s phenomenon [Unknown]
  - Sinusitis [Unknown]
  - Sinusitis bacterial [Unknown]
  - Rhinitis allergic [Unknown]
  - Blood urine present [Unknown]
  - Cellulitis [Unknown]
  - Rosacea [Unknown]
  - Actinic keratosis [Unknown]
  - Spinal stenosis [Unknown]
  - Back pain [Unknown]
  - Myofascial pain syndrome [Unknown]
  - Oedema [Unknown]
  - Haemoptysis [Unknown]
  - Musculoskeletal chest pain [Unknown]
  - Hyperglycaemia [Unknown]
  - Liver function test abnormal [Unknown]
  - Dermal cyst [Unknown]
  - Piriformis syndrome [Unknown]
  - Iron deficiency anaemia [Unknown]
  - Limb injury [Unknown]
  - Blood pressure abnormal [Unknown]
  - Fluid retention [Unknown]
  - Thyroid disorder [Unknown]

NARRATIVE: CASE EVENT DATE: 20210921
